FAERS Safety Report 10245113 (Version 2)
Quarter: 2014Q2

REPORT INFORMATION
  Report Type: Spontaneous
  Country: JP (occurrence: None)
  Receive Date: 20140616
  Receipt Date: 20140625
  Transmission Date: 20141212
  Serious: Yes (Hospitalization)
  Sender: FDA-Public Use
  Company Number: FK201402349

PATIENT
  Age: 31 Year
  Sex: Female

DRUGS (4)
  1. METHOTREXATE (MANUFACTURER UNKNOWN) (METHOTREXATE) (METHOTREXATE) [Suspect]
     Indication: RHEUMATOID ARTHRITIS
  2. METHYLPREDNISOLONE (MANUFACTURER UNKNOWN) (METHYLPREDNISOLONE SODIUM SUCCINATE) (METHYLPREDNISOLONE SODIUM SUCCINATE) [Suspect]
     Indication: RHEUMATOID ARTHRITIS
  3. TOCILIZUMAB (TOCILIZUMAB) (TOCILIZUMAB) [Suspect]
     Indication: RHEUMATOID ARTHRITIS
     Dosage: AT 4 WEEK INTERVALS
  4. INFLIXIMAB (INFLIXIMAB) [Concomitant]

REACTIONS (1)
  - Herpes zoster oticus [None]
